FAERS Safety Report 9210634 (Version 1)
Quarter: 2013Q2

REPORT INFORMATION
  Report Type: Spontaneous
  Country: US (occurrence: US)
  Receive Date: 20130404
  Receipt Date: 20130404
  Transmission Date: 20140414
  Serious: Yes (Other)
  Sender: FDA-Public Use
  Company Number: CHPA2013US005744

PATIENT
  Age: 17 Year
  Sex: Female

DRUGS (2)
  1. EXCEDRIN MIGRAINE [Suspect]
     Indication: MIGRAINE
     Dosage: UNK, UNK
     Route: 048
  2. TOPAMAX [Concomitant]

REACTIONS (7)
  - Anaemia [Not Recovered/Not Resolved]
  - Splenomegaly [Not Recovered/Not Resolved]
  - Amnesia [Not Recovered/Not Resolved]
  - Cognitive disorder [Not Recovered/Not Resolved]
  - Abdominal pain [Not Recovered/Not Resolved]
  - Overdose [Unknown]
  - Incorrect dose administered [Unknown]
